FAERS Safety Report 10735855 (Version 4)
Quarter: 2015Q1

REPORT INFORMATION
  Report Type: Spontaneous
  Country: US (occurrence: US)
  Receive Date: 20150126
  Receipt Date: 20150320
  Transmission Date: 20150721
  Serious: Yes (Hospitalization)
  Sender: FDA-Public Use
  Company Number: US-BIOGENIDEC-2015BI006879

PATIENT
  Age: 35 Year
  Sex: Male

DRUGS (1)
  1. TECFIDERA [Suspect]
     Active Substance: DIMETHYL FUMARATE
     Indication: MULTIPLE SCLEROSIS
     Route: 048
     Dates: start: 20140701

REACTIONS (9)
  - Dehydration [Recovered/Resolved]
  - Flushing [Recovered/Resolved]
  - Heart rate increased [Not Recovered/Not Resolved]
  - Catheter removal [Recovered/Resolved]
  - Cystitis [Recovered/Resolved]
  - Muscle spasticity [Recovered/Resolved with Sequelae]
  - Rash [Recovered/Resolved]
  - Dysphagia [Not Recovered/Not Resolved]
  - Pyrexia [Recovered/Resolved]

NARRATIVE: CASE EVENT DATE: 2014
